FAERS Safety Report 5690527-7 (Version None)
Quarter: 2008Q1

REPORT INFORMATION
  Report Type: 
  Country: None (occurrence: None)
  Receive Date: 20080331
  Receipt Date: 20080331
  Transmission Date: 20080703
  Serious: Yes (Disabling, Other)
  Sender: FDA-Public Use
  Company Number: None

PATIENT
  Age: 3 Year
  Sex: Male
  Weight: 13.6079 kg

DRUGS (1)
  1. SINGULAIR [Suspect]
     Indication: COUGH
     Dosage: 1 CHEWABLE TABLET ONCE AT NIGHT PO
     Route: 048
     Dates: start: 20041001, end: 20051031

REACTIONS (8)
  - AGGRESSION [None]
  - ATONIC SEIZURES [None]
  - CONVULSION [None]
  - CRYING [None]
  - HALLUCINATION [None]
  - OBSESSIVE-COMPULSIVE DISORDER [None]
  - SCREAMING [None]
  - SPEECH DISORDER [None]
